FAERS Safety Report 4607512-6 (Version None)
Quarter: 2005Q1

REPORT INFORMATION
  Report Type: 
  Country: None (occurrence: None)
  Receive Date: 20050309
  Receipt Date: 20050224
  Transmission Date: 20050727
  Serious: Yes (Life-Threatening)
  Sender: FDA-Public Use
  Company Number: 2004AP03879

PATIENT
  Age: 65 Year
  Sex: Male

DRUGS (7)
  1. IRESSA [Suspect]
     Indication: LUNG SQUAMOUS CELL CARCINOMA STAGE UNSPECIFIED
     Dosage: 250 MG DAILY PO
     Route: 048
     Dates: start: 20020612, end: 20040716
  2. CISPLATIN [Suspect]
     Indication: SQUAMOUS CELL CARCINOMA
     Dosage: 80 MG/M2
     Dates: start: 20000101
  3. MITOMYCIN-C BULK POWDER [Suspect]
     Indication: SQUAMOUS CELL CARCINOMA
     Dosage: 8 MG/M2
     Dates: start: 20000101
  4. VINORELBINE TARTRATE [Suspect]
     Indication: SQUAMOUS CELL CARCINOMA
     Dosage: 20MG/M2
     Dates: start: 20000101
  5. VOLTAREN [Concomitant]
  6. SELBEX [Concomitant]
  7. RADIATION THERAPY [Concomitant]

REACTIONS (5)
  - ACUTE PROMYELOCYTIC LEUKAEMIA [None]
  - LUNG SQUAMOUS CELL CARCINOMA RECURRENT [None]
  - MYELODYSPLASTIC SYNDROME [None]
  - PANCYTOPENIA [None]
  - THERAPEUTIC RESPONSE DECREASED [None]
